FAERS Safety Report 7587142-7 (Version None)
Quarter: 2011Q3

REPORT INFORMATION
  Report Type: 
  Country: None (occurrence: None)
  Receive Date: 20110701
  Receipt Date: 20110623
  Transmission Date: 20111222
  Serious: Yes (Death)
  Sender: FDA-Public Use
  Company Number: US-AMGEN-USASP2011031346

PATIENT
  Sex: Male

DRUGS (2)
  1. NPLATE [Suspect]
     Indication: IDIOPATHIC THROMBOCYTOPENIC PURPURA
     Dosage: 1 A?G/KG, UNK
     Dates: start: 20110131, end: 20110214
  2. NPLATE [Suspect]
     Dates: start: 20110131

REACTIONS (4)
  - MULTIPLE MYELOMA [None]
  - PALLOR [None]
  - FATIGUE [None]
  - ASTHENIA [None]
